FAERS Safety Report 10993513 (Version 1)
Quarter: 2015Q2

REPORT INFORMATION
  Report Type: Report from Study
  Country: BR (occurrence: BR)
  Receive Date: 20150407
  Receipt Date: 20150407
  Transmission Date: 20150821
  Serious: Yes (Hospitalization)
  Sender: FDA-Public Use
  Company Number: BR-ROCHE-1556437

PATIENT
  Age: 70 Year
  Sex: Female

DRUGS (54)
  1. PERTUZUMAB [Suspect]
     Active Substance: PERTUZUMAB
     Indication: HER-2 POSITIVE BREAST CANCER
     Route: 042
     Dates: start: 20131018
  2. MEROPENEM. [Concomitant]
     Active Substance: MEROPENEM
     Route: 065
     Dates: start: 20131223, end: 20140105
  3. ALENIA (BRAZIL) [Concomitant]
     Active Substance: BUDESONIDE\FORMOTEROL FUMARATE
     Dosage: 48/1600 MG DAILY
     Route: 065
     Dates: start: 20141225
  4. DIPYRONE [Concomitant]
     Active Substance: DIPYRONE
     Route: 065
     Dates: start: 20131107, end: 20140108
  5. FUROSEMIDE. [Concomitant]
     Active Substance: FUROSEMIDE
     Route: 065
     Dates: start: 20140215, end: 20140728
  6. PHENAZOPYRIDINE. [Concomitant]
     Active Substance: PHENAZOPYRIDINE
     Dosage: 2 CAPP
     Route: 065
     Dates: start: 20140508, end: 20140524
  7. SEPURIN [Concomitant]
     Dosage: 1 CAPSULE
     Route: 065
     Dates: start: 20141204, end: 20141210
  8. SEROQUEL [Concomitant]
     Active Substance: QUETIAPINE FUMARATE
     Route: 065
     Dates: start: 2007, end: 20140101
  9. LEXOTAN [Concomitant]
     Active Substance: BROMAZEPAM
     Route: 065
     Dates: start: 2013
  10. ALENIA (BRAZIL) [Concomitant]
     Active Substance: BUDESONIDE\FORMOTEROL FUMARATE
     Dosage: 1 CAPP
     Route: 065
     Dates: start: 20131223, end: 20140107
  11. ALDACTONE (BRAZIL) [Concomitant]
     Route: 065
     Dates: start: 20140821
  12. MIFLONIDE [Concomitant]
     Active Substance: BUDESONIDE
     Route: 065
     Dates: start: 20141215
  13. PREDNISONE. [Concomitant]
     Active Substance: PREDNISONE
     Route: 065
     Dates: start: 20141109, end: 20141228
  14. ARTROLIVE [Concomitant]
     Active Substance: CHONDROITIN SULFATE (BOVINE)\GLUCOSAMINE SULFATE
     Dosage: 1 CAPP
     Route: 065
     Dates: start: 20140215, end: 20140809
  15. FOSFOMYCIN [Concomitant]
     Active Substance: FOSFOMYCIN
     Dosage: 1 ENVELOPE
     Route: 065
     Dates: start: 20140511, end: 20140511
  16. AMPHOTERICIN [Concomitant]
     Active Substance: AMPHOTERICIN B
     Route: 065
     Dates: start: 20131225, end: 20140103
  17. REFRESH OPTIVE [Concomitant]
     Active Substance: CARBOXYMETHYLCELLULOSE SODIUM\GLYCERIN
     Dosage: 8 DROPS
     Route: 065
     Dates: start: 20141020, end: 20141024
  18. CLAVULIN BD [Concomitant]
     Active Substance: AMOXICILLIN\CLAVULANATE POTASSIUM
     Dosage: 875/125 MG
     Route: 065
     Dates: start: 20141112, end: 20141121
  19. DORFLEX [Concomitant]
     Active Substance: CAFFEINE\DIPYRONE\ORPHENADRINE
     Dosage: 1 CAPPS
     Route: 065
  20. ALDACTONE (BRAZIL) [Concomitant]
     Route: 065
     Dates: start: 20140728, end: 20140820
  21. MIFLONIDE [Concomitant]
     Active Substance: BUDESONIDE
     Route: 065
     Dates: start: 20140728, end: 20140821
  22. METHENAMINE [Concomitant]
     Active Substance: METHENAMINE
     Dosage: 3 CAPSULES
     Route: 065
     Dates: start: 20140519, end: 20140523
  23. ROSUVASTATIN [Concomitant]
     Active Substance: ROSUVASTATIN
     Dosage: 1 CAPPS
     Route: 065
     Dates: start: 201309
  24. LEVOFLOXACIN. [Concomitant]
     Active Substance: LEVOFLOXACIN
     Route: 065
     Dates: start: 20131108, end: 20141109
  25. IMOSEC [Concomitant]
     Active Substance: LOPERAMIDE
     Route: 065
     Dates: start: 20140809, end: 20140815
  26. CLARITHROMYCIN. [Concomitant]
     Active Substance: CLARITHROMYCIN
     Route: 065
     Dates: start: 20131223, end: 20140105
  27. CIPROFLOXACIN. [Concomitant]
     Active Substance: CIPROFLOXACIN
     Route: 065
     Dates: start: 20150126, end: 20150203
  28. ZINNAT [Concomitant]
     Active Substance: CEFUROXIME AXETIL
     Route: 065
     Dates: start: 20150226, end: 20150227
  29. PERTUZUMAB [Suspect]
     Active Substance: PERTUZUMAB
     Dosage: MAINTENENCE DOSE?LAST DOSE PRIOR TO SAE WAS ON: 20/MAR/2015
     Route: 042
     Dates: start: 20131108
  30. TRASTUZUMAB [Suspect]
     Active Substance: TRASTUZUMAB
     Indication: HER-2 POSITIVE BREAST CANCER
     Dosage: LOADING DOSE
     Route: 042
     Dates: start: 20131018
  31. TRASTUZUMAB [Suspect]
     Active Substance: TRASTUZUMAB
     Dosage: MAINTENENCE DOSE?LAST DOSE PRIOR TO SAE WAS ON: 20/MAR/2015
     Route: 042
     Dates: start: 20131108
  32. MONTELUCAST [Concomitant]
     Active Substance: MONTELUKAST SODIUM
     Route: 065
     Dates: start: 2001
  33. DORFLEX [Concomitant]
     Active Substance: CAFFEINE\DIPYRONE\ORPHENADRINE
     Dosage: 3 CAPSULES
     Route: 065
     Dates: start: 20140514, end: 20140514
  34. IMOSEC [Concomitant]
     Active Substance: LOPERAMIDE
     Route: 065
     Dates: start: 20140830, end: 20141114
  35. FLORATIL [Concomitant]
     Route: 065
     Dates: start: 20140809, end: 20140812
  36. BLOOD TRANSFUSION [Concomitant]
     Active Substance: WHOLE BLOOD
     Dosage: 1 UNIT
     Route: 065
     Dates: start: 20131223, end: 20131225
  37. FILGRASTIM [Concomitant]
     Active Substance: FILGRASTIM
     Route: 065
     Dates: start: 20131218, end: 20131221
  38. ATROVENT [Concomitant]
     Active Substance: IPRATROPIUM BROMIDE
     Dosage: 4 UNITS
     Route: 065
     Dates: start: 20131223, end: 20140107
  39. BAMIFIX [Concomitant]
     Active Substance: BAMIFYLLINE HYDROCHLORIDE
     Route: 065
     Dates: start: 20141109, end: 20141121
  40. ALLEGRA [Concomitant]
     Active Substance: FEXOFENADINE HYDROCHLORIDE
     Route: 065
     Dates: start: 20150307, end: 20150319
  41. MACRODANTIN [Concomitant]
     Active Substance: NITROFURANTOIN
     Route: 065
     Dates: start: 20150228, end: 20150307
  42. DOCETAXEL. [Suspect]
     Active Substance: DOCETAXEL
     Indication: HER-2 POSITIVE BREAST CANCER
     Dosage: LAST DOSE PRIOR TO SAE 10/DEC/2013.
     Route: 042
     Dates: start: 20131018
  43. SERTRALINE [Concomitant]
     Active Substance: SERTRALINE HYDROCHLORIDE
     Route: 065
     Dates: start: 2007
  44. PANTOPRAZOLE [Concomitant]
     Active Substance: PANTOPRAZOLE SODIUM
     Route: 065
     Dates: start: 201301
  45. ALENIA (BRAZIL) [Concomitant]
     Active Substance: BUDESONIDE\FORMOTEROL FUMARATE
     Dosage: 12/400
     Route: 065
     Dates: start: 20140704, end: 20141224
  46. ANASTROZOLE. [Concomitant]
     Active Substance: ANASTROZOLE
     Route: 065
     Dates: start: 20140122
  47. PREDNISONE. [Concomitant]
     Active Substance: PREDNISONE
     Route: 065
     Dates: start: 20140109, end: 20150319
  48. BACTRIM [Concomitant]
     Active Substance: SULFAMETHOXAZOLE\TRIMETHOPRIM
     Dosage: 15 AMPOULES
     Route: 065
     Dates: start: 20131223, end: 20140105
  49. SEROQUEL [Concomitant]
     Active Substance: QUETIAPINE FUMARATE
     Route: 065
     Dates: start: 201401
  50. DIOVAN [Concomitant]
     Active Substance: VALSARTAN
     Dosage: 1 CAPPS
     Route: 065
     Dates: start: 201401
  51. ALDACTONE (BRAZIL) [Concomitant]
     Route: 065
     Dates: start: 20140215, end: 20140727
  52. DIPYRONE [Concomitant]
     Active Substance: DIPYRONE
     Route: 065
     Dates: start: 20131018, end: 20131018
  53. LOPERAMIDE [Concomitant]
     Active Substance: LOPERAMIDE
     Route: 065
     Dates: start: 20131019, end: 20131023
  54. FLORATIL [Concomitant]
     Route: 065
     Dates: start: 20140815, end: 20140815

REACTIONS (1)
  - Cellulitis [Recovered/Resolved]

NARRATIVE: CASE EVENT DATE: 20150323
